FAERS Safety Report 15285511 (Version 1)
Quarter: 2018Q3

REPORT INFORMATION
  Report Type: Spontaneous
  Country: DE (occurrence: DE)
  Receive Date: 20180816
  Receipt Date: 20180816
  Transmission Date: 20181010
  Serious: Yes (Hospitalization)
  Sender: FDA-Public Use
  Company Number: DE-TEVA-2018-DE-943140

PATIENT
  Age: 53 Year
  Sex: Female

DRUGS (5)
  1. UNITHIOL [Suspect]
     Active Substance: UNITHIOL
     Indication: METAL POISONING
     Route: 041
  2. THIOCTIC ACID [Suspect]
     Active Substance: THIOCTIC ACID
     Indication: METAL POISONING
     Route: 041
  3. SODIUM CALCIUM EDETATE [Suspect]
     Active Substance: EDETATE CALCIUM DISODIUM
     Indication: METAL POISONING
     Route: 041
  4. PROCAINE [Suspect]
     Active Substance: PROCAINE
     Indication: METAL POISONING
     Route: 041
  5. SODIUM BICARBONATE. [Suspect]
     Active Substance: SODIUM BICARBONATE
     Indication: METAL POISONING
     Route: 041

REACTIONS (13)
  - Myalgia [Recovering/Resolving]
  - Vomiting [Recovering/Resolving]
  - Haematoma [Recovering/Resolving]
  - Overdose [Recovering/Resolving]
  - Liver injury [Recovered/Resolved]
  - Pyrexia [Recovering/Resolving]
  - Nausea [Recovering/Resolving]
  - Epistaxis [Recovering/Resolving]
  - Chills [Recovering/Resolving]
  - Medication error [Recovering/Resolving]
  - Coagulopathy [Recovering/Resolving]
  - Serum ferritin increased [Recovering/Resolving]
  - Bone marrow disorder [Recovered/Resolved]
